FAERS Safety Report 17365359 (Version 2)
Quarter: 2020Q1

REPORT INFORMATION
  Report Type: Report from Study
  Country: IT (occurrence: IT)
  Receive Date: 20200204
  Receipt Date: 20200225
  Transmission Date: 20200409
  Serious: Yes (Death, Hospitalization)
  Sender: FDA-Public Use
  Company Number: IT-ROCHE-2520456

PATIENT
  Age: 62 Year
  Sex: Male

DRUGS (3)
  1. ETOPOSIDE. [Suspect]
     Active Substance: ETOPOSIDE
     Indication: SMALL CELL LUNG CANCER EXTENSIVE STAGE
     Dosage: ETOPOSIDE WILL BE ADMINISTERED BY IV INFUSION OVER 60 MINUTES FOLLOWING CARBOPLATIN ADMINISTRATION,
     Route: 042
     Dates: start: 20191228
  2. ATEZOLIZUMAB. [Suspect]
     Active Substance: ATEZOLIZUMAB
     Indication: SMALL CELL LUNG CANCER EXTENSIVE STAGE
     Dosage: ATEZOLIZUMAB WILL BE ADMINISTERED BY IV INFUSION AT A FIXED DOSE OF 1200 MG ON DAY 1 OF EACH 21-DAY
     Route: 042
     Dates: start: 20191228
  3. CARBOPLATIN. [Suspect]
     Active Substance: CARBOPLATIN
     Indication: SMALL CELL LUNG CANCER EXTENSIVE STAGE
     Dosage: CARBOPLATIN WILL BE ADMINISTERED AFTER COMPLETION OF ATEZOLIZUMAB BY IV INFUSION OVER 30-60 MINUTES
     Route: 042
     Dates: start: 20191228

REACTIONS (2)
  - Pulmonary oedema [Fatal]
  - Hyponatraemia [Not Recovered/Not Resolved]

NARRATIVE: CASE EVENT DATE: 20200106
